FAERS Safety Report 4536556-8 (Version None)
Quarter: 2004Q4

REPORT INFORMATION
  Report Type: 
  Country: None (occurrence: None)
  Receive Date: 20041223
  Receipt Date: 20041215
  Transmission Date: 20050328
  Serious: Yes (Other)
  Sender: FDA-Public Use
  Company Number: CH-JNJFOC-20041204305

PATIENT
  Sex: Male
  Weight: 68 kg

DRUGS (1)
  1. CONCERTA [Suspect]
     Route: 049
     Dates: start: 20041001

REACTIONS (1)
  - ERECTILE DYSFUNCTION [None]
